FAERS Safety Report 8134250-8 (Version None)
Quarter: 2012Q1

REPORT INFORMATION
  Report Type: 
  Country: None (occurrence: None)
  Receive Date: 20120209
  Receipt Date: 20120125
  Transmission Date: 20120608
  Serious: Yes (Hospitalization)
  Sender: FDA-Public Use
  Company Number: 2012HGS-003086

PATIENT
  Age: 27 Year
  Sex: Female
  Weight: 40.3701 kg

DRUGS (5)
  1. METHOTREXATE [Concomitant]
  2. BENLYSTA [Suspect]
     Indication: SYSTEMIC LUPUS ERYTHEMATOSUS
     Dosage: 400 MG, 1 IN 14 D, INTRAVENOUS DRIP)
     Route: 041
     Dates: start: 20111214, end: 20120111
  3. BENLYSTA [Suspect]
  4. PREDNISONE TAB [Concomitant]
  5. PLAQUENIL (HYDROXYCHLOROQUINE SULFATE) (HYDROXYCHLOROQUINE SULFATE) [Concomitant]

REACTIONS (10)
  - CONVULSION [None]
  - CONDITION AGGRAVATED [None]
  - HEMIPARESIS [None]
  - HYPOAESTHESIA [None]
  - URINARY TRACT INFECTION [None]
  - KIDNEY INFECTION [None]
  - NEUROPSYCHIATRIC LUPUS [None]
  - COMPLEMENT FACTOR C3 DECREASED [None]
  - COMPLEMENT FACTOR C4 DECREASED [None]
  - HEADACHE [None]
